FAERS Safety Report 10655379 (Version 1)
Quarter: 2014Q4

REPORT INFORMATION
  Report Type: Spontaneous
  Country: US (occurrence: None)
  Receive Date: 20141215
  Receipt Date: 20141215
  Transmission Date: 20150529
  Serious: Yes (Hospitalization)
  Sender: FDA-Public Use
  Company Number: None

PATIENT
  Age: 14 Year
  Sex: Male
  Weight: 66.68 kg

DRUGS (1)
  1. LEVETIRACETAM. [Suspect]
     Active Substance: LEVETIRACETAM
     Indication: SEIZURE
     Dosage: 1 TAB
     Route: 048
     Dates: start: 20141128, end: 20141212

REACTIONS (4)
  - Generalised tonic-clonic seizure [None]
  - Unevaluable event [None]
  - Hypersomnia [None]
  - Educational problem [None]

NARRATIVE: CASE EVENT DATE: 20141206
